FAERS Safety Report 10840860 (Version 1)
Quarter: 2015Q1

REPORT INFORMATION
  Report Type: Report from Study
  Country: US (occurrence: US)
  Receive Date: 20150220
  Receipt Date: 20150220
  Transmission Date: 20150721
  Serious: No
  Sender: FDA-Public Use
  Company Number: US-ABBVIE-14P-163-1243279-00

PATIENT
  Age: 36 Year
  Sex: Male

DRUGS (7)
  1. HUMIRA [Suspect]
     Active Substance: ADALIMUMAB
     Indication: PSORIASIS
     Dates: start: 20131008, end: 20131008
  2. HUMIRA [Suspect]
     Active Substance: ADALIMUMAB
     Dates: start: 20131015, end: 20131015
  3. ALBUTEROL. [Concomitant]
     Active Substance: ALBUTEROL
     Indication: PRODUCT USED FOR UNKNOWN INDICATION
     Route: 055
  4. HUMIRA [Suspect]
     Active Substance: ADALIMUMAB
     Dates: start: 20140416, end: 20140416
  5. HUMIRA [Suspect]
     Active Substance: ADALIMUMAB
     Dates: start: 20140430
  6. HUMIRA [Suspect]
     Active Substance: ADALIMUMAB
     Dates: start: 20131022, end: 201312
  7. HUMIRA [Suspect]
     Active Substance: ADALIMUMAB
     Dates: start: 20140423, end: 20140423

REACTIONS (1)
  - Upper respiratory tract infection [Recovered/Resolved]

NARRATIVE: CASE EVENT DATE: 201312
